FAERS Safety Report 16390084 (Version 3)
Quarter: 2019Q2

REPORT INFORMATION
  Report Type: Spontaneous
  Country: CN (occurrence: CN)
  Receive Date: 20190604
  Receipt Date: 20190618
  Transmission Date: 20190711
  Serious: Yes (Hospitalization, Other)
  Sender: FDA-Public Use
  Company Number: CN-ASTRAZENECA-2019SE80746

PATIENT
  Age: 25243 Day
  Sex: Male
  Weight: 60 kg

DRUGS (5)
  1. HEPARIN [Concomitant]
     Active Substance: HEPARIN SODIUM
     Dosage: 4100.0IU UNKNOWN
     Dates: start: 20190524, end: 20190525
  2. PULMICORT RESPULES [Suspect]
     Active Substance: BUDESONIDE
     Indication: ENDOTRACHEAL INTUBATION
     Dosage: 2 PER TIME,TID
     Route: 055
     Dates: start: 20190525, end: 20190525
  3. FLUIMUCIL [Concomitant]
     Active Substance: ACETYLCYSTEINE
     Dosage: 1 PER TIME, TID,
     Dates: start: 20190525
  4. BRICANYL [Suspect]
     Active Substance: TERBUTALINE SULFATE
     Dosage: 2.5 MG 4TH-5TH TIMES
     Route: 055
     Dates: start: 20190516, end: 20190516
  5. BRICANYL [Suspect]
     Active Substance: TERBUTALINE SULFATE
     Route: 055
     Dates: start: 20190515, end: 20190515

REACTIONS (11)
  - Malaise [Unknown]
  - Panic reaction [Unknown]
  - Oxygen saturation decreased [Unknown]
  - Dyspnoea [Recovering/Resolving]
  - Tachycardia [Unknown]
  - Cardiac failure [Unknown]
  - Heart rate increased [Unknown]
  - Palpitations [Recovering/Resolving]
  - Tremor [Recovering/Resolving]
  - Chest discomfort [Recovering/Resolving]
  - Cardiac disorder [Unknown]

NARRATIVE: CASE EVENT DATE: 20190516
